FAERS Safety Report 21532882 (Version 1)
Quarter: 2022Q4

REPORT INFORMATION
  Report Type: Spontaneous
  Country: US (occurrence: US)
  Receive Date: 20221101
  Receipt Date: 20221101
  Transmission Date: 20230112
  Serious: No
  Sender: FDA-Public Use
  Company Number: US-ABBVIE-4148706

PATIENT

DRUGS (2)
  1. SYNTHROID [Suspect]
     Active Substance: LEVOTHYROXINE SODIUM
     Indication: Product used for unknown indication
     Route: 048
  2. ARMOUR THYROID [Suspect]
     Active Substance: THYROID, PORCINE
     Indication: Product used for unknown indication
     Dosage: THYROID POWDER 15MG TAB TBD
     Route: 065

REACTIONS (4)
  - Weight increased [Recovered/Resolved]
  - Weight decreased [Unknown]
  - Alopecia [Recovered/Resolved]
  - Fatigue [Recovered/Resolved]
